FAERS Safety Report 9368996 (Version 2)
Quarter: 2013Q3

REPORT INFORMATION
  Report Type: Report from Study
  Country: US (occurrence: US)
  Receive Date: 20130626
  Receipt Date: 20130820
  Transmission Date: 20140515
  Serious: Yes (Other)
  Sender: FDA-Public Use
  Company Number: PHEH2013US013439

PATIENT
  Age: 56 Year
  Sex: Female

DRUGS (3)
  1. GILENYA [Suspect]
     Indication: MULTIPLE SCLEROSIS
     Dosage: 0.5 MG, QD
     Route: 048
     Dates: start: 201305
  2. HYDROCHLOROTHIAZIDE [Concomitant]
  3. ALBUTEROL [Concomitant]

REACTIONS (5)
  - Asthma [Unknown]
  - Upper respiratory tract infection [Recovering/Resolving]
  - Bronchitis [Unknown]
  - Sinusitis [Unknown]
  - Vision blurred [Unknown]
